FAERS Safety Report 10370158 (Version 1)
Quarter: 2014Q3

REPORT INFORMATION
  Report Type: Spontaneous
  Country: US (occurrence: US)
  Receive Date: 20140808
  Receipt Date: 20140808
  Transmission Date: 20150326
  Serious: Yes (Other)
  Sender: FDA-Public Use
  Company Number: US-ACCORD-025204

PATIENT
  Age: 66 Year
  Sex: Female

DRUGS (3)
  1. METHOTREXATE [Suspect]
     Active Substance: METHOTREXATE
     Indication: RHEUMATOID ARTHRITIS
     Dosage: DOUBLED HER WEEKLY MTX
  2. ASPIRIN. [Concomitant]
     Active Substance: ASPIRIN
  3. HYDROXYCHLOROQUINE [Concomitant]
     Active Substance: HYDROXYCHLOROQUINE

REACTIONS (4)
  - Stomatitis [Unknown]
  - Toxicity to various agents [Unknown]
  - Pancytopenia [Recovering/Resolving]
  - Skin erosion [Recovering/Resolving]
